FAERS Safety Report 9531381 (Version 1)
Quarter: 2013Q3

REPORT INFORMATION
  Report Type: Spontaneous
  Country: CA (occurrence: CA)
  Receive Date: 20130918
  Receipt Date: 20130918
  Transmission Date: 20140515
  Serious: Yes (Other)
  Sender: FDA-Public Use
  Company Number: CA-009507513-1309CAN007466

PATIENT
  Age: 55 Year
  Sex: Male
  Weight: 89 kg

DRUGS (4)
  1. PEGETRON [Suspect]
     Indication: PRODUCT USED FOR UNKNOWN INDICATION
     Dosage: 120 MICROGRAM, UNK
     Route: 058
  2. PEGETRON [Suspect]
     Dosage: 200 MG, BID
     Route: 048
  3. PEGETRON [Suspect]
     Dosage: 1000 MG, QD
     Route: 048
  4. VICTRELIS [Suspect]
     Indication: PRODUCT USED FOR UNKNOWN INDICATION
     Dosage: 200 MG, TID
     Route: 048

REACTIONS (1)
  - Tooth disorder [Unknown]
